FAERS Safety Report 5201463-4 (Version None)
Quarter: 2007Q1

REPORT INFORMATION
  Report Type: 
  Country: None (occurrence: None)
  Receive Date: 20070108
  Receipt Date: 20061227
  Transmission Date: 20070707
  Serious: Yes (Death, Life-Threatening, Other)
  Sender: FDA-Public Use
  Company Number: JP-PFIZER INC-2006133732

PATIENT
  Sex: Female
  Weight: 13 kg

DRUGS (18)
  1. ZYVOX [Suspect]
     Indication: SEPSIS
     Route: 042
     Dates: start: 20061024, end: 20061027
  2. MINOCYCLINE HCL [Concomitant]
     Route: 042
  3. CIPROFLOXACIN [Concomitant]
     Route: 042
     Dates: start: 20061024, end: 20061108
  4. VFEND [Concomitant]
     Dates: start: 20061024, end: 20061026
  5. MODACIN [Concomitant]
     Route: 042
     Dates: start: 20061022, end: 20061024
  6. STRONG NEO-MINOPHAGEN C [Concomitant]
     Indication: RENAL IMPAIRMENT
     Route: 042
  7. CORETEC [Concomitant]
     Indication: CARDIAC FAILURE
     Route: 042
     Dates: start: 20061019, end: 20061101
  8. MIRACLID [Concomitant]
     Route: 042
  9. GASTER [Concomitant]
     Route: 042
     Dates: start: 20061010, end: 20061027
  10. FENTANEST [Concomitant]
     Route: 042
     Dates: start: 20061018, end: 20061027
  11. NICARDIPINE HYDROCHLORIDE [Concomitant]
     Indication: HYPERTENSION
     Route: 042
     Dates: start: 20061020
  12. PROPOFOL [Concomitant]
     Route: 042
     Dates: start: 20061025, end: 20061026
  13. MEROPEN [Concomitant]
     Route: 042
     Dates: start: 20061008, end: 20061022
  14. MICAFUNGIN [Concomitant]
     Route: 042
     Dates: start: 20061020, end: 20061023
  15. DALACIN-S [Concomitant]
     Route: 042
     Dates: start: 20061022, end: 20061023
  16. ANTINEOPLASTIC AGENTS [Concomitant]
     Indication: HISTIOCYTOSIS HAEMATOPHAGIC
  17. CORTICOSTEROIDS [Concomitant]
     Indication: HISTIOCYTOSIS HAEMATOPHAGIC
  18. PRODIF [Concomitant]
     Route: 042
     Dates: start: 20061001

REACTIONS (6)
  - CONDITION AGGRAVATED [None]
  - DIARRHOEA [None]
  - HAEMATOCHEZIA [None]
  - HAEMOGLOBIN DECREASED [None]
  - HEPATIC ENZYME INCREASED [None]
  - PLATELET COUNT DECREASED [None]
